FAERS Safety Report 5385932-2 (Version None)
Quarter: 2007Q3

REPORT INFORMATION
  Report Type: 
  Country: None (occurrence: None)
  Receive Date: 20070710
  Receipt Date: 20070627
  Transmission Date: 20080115
  Serious: Yes (Hospitalization)
  Sender: FDA-Public Use
  Company Number: GXKR2007IE05526

PATIENT
  Age: 64 Year
  Sex: Male

DRUGS (3)
  1. AMOCLAV (NGX) AMOXICILLIN, CLAVULANATE) UNKNOWN [Suspect]
     Indication: URINARY TRACT INFECTION
     Dosage: 250/125 MG, ORAL
     Route: 048
     Dates: start: 20070620, end: 20070620
  2. ASPIRIN [Concomitant]
  3. ATORVASTATIN CALCIUM [Concomitant]

REACTIONS (2)
  - DYSPNOEA [None]
  - SWELLING FACE [None]
